FAERS Safety Report 21473926 (Version 1)
Quarter: 2022Q4

REPORT INFORMATION
  Report Type: Report from Study
  Country: US (occurrence: US)
  Receive Date: 20221018
  Receipt Date: 20221018
  Transmission Date: 20230112
  Serious: Yes (Disabling, Other)
  Sender: FDA-Public Use
  Company Number: US-JAZZ-2022-US-032366

PATIENT
  Sex: Male

DRUGS (3)
  1. XYREM [Suspect]
     Active Substance: SODIUM OXYBATE
     Indication: Narcolepsy
     Dosage: UNK
  2. XYREM [Suspect]
     Active Substance: SODIUM OXYBATE
     Indication: Cataplexy
  3. XYREM [Suspect]
     Active Substance: SODIUM OXYBATE
     Indication: Somnolence

REACTIONS (7)
  - Nerve injury [Unknown]
  - Bipolar disorder [Unknown]
  - Rhabdomyolysis [Unknown]
  - Surgery [Unknown]
  - Wheezing [Unknown]
  - Headache [Unknown]
  - Product administration interrupted [Unknown]
